FAERS Safety Report 7480243-3 (Version None)
Quarter: 2011Q2

REPORT INFORMATION
  Report Type: 
  Country: None (occurrence: None)
  Receive Date: 20110516
  Receipt Date: 20110506
  Transmission Date: 20111010
  Serious: No
  Sender: FDA-Public Use
  Company Number: US-BIOGENIDEC-2011BI017532

PATIENT
  Age: 41 Year
  Sex: Female

DRUGS (1)
  1. TYSABRI [Suspect]
     Indication: MULTIPLE SCLEROSIS
     Route: 042
     Dates: start: 20110412

REACTIONS (5)
  - FATIGUE [None]
  - LACERATION [None]
  - FALL [None]
  - DIPLOPIA [None]
  - HEAD INJURY [None]
